FAERS Safety Report 14738631 (Version 1)
Quarter: 2018Q2

REPORT INFORMATION
  Report Type: Spontaneous
  Country: US (occurrence: JP)
  Receive Date: 20180409
  Receipt Date: 20180409
  Transmission Date: 20180711
  Serious: Yes (Other)
  Sender: FDA-Public Use
  Company Number: US-SUNOVION-2018SUN001341

PATIENT
  Age: 82 Year
  Sex: Female

DRUGS (3)
  1. INDACATEROL [Suspect]
     Active Substance: INDACATEROL
     Dosage: 150 ?G, UNK
     Route: 055
  2. INDACATEROL [Suspect]
     Active Substance: INDACATEROL
     Indication: CHRONIC OBSTRUCTIVE PULMONARY DISEASE
     Route: 055
  3. INDACATEROL [Suspect]
     Active Substance: INDACATEROL
     Dosage: 150 ?G, UNK
     Route: 048
     Dates: start: 20180312, end: 20180312

REACTIONS (2)
  - Incorrect route of drug administration [Unknown]
  - Dementia [Unknown]

NARRATIVE: CASE EVENT DATE: 20180312
